FAERS Safety Report 10874435 (Version 1)
Quarter: 2015Q1

REPORT INFORMATION
  Report Type: Spontaneous
  Country: US (occurrence: None)
  Receive Date: 20150223
  Receipt Date: 20150223
  Transmission Date: 20150721
  Serious: Yes (Congenital Anomaly)
  Sender: FDA-Public Use
  Company Number: None

PATIENT
  Sex: Female
  Weight: 3.18 kg

DRUGS (1)
  1. ZOFRAN [Suspect]
     Active Substance: ONDANSETRON HYDROCHLORIDE
     Indication: VOMITING IN PREGNANCY
     Dosage: 1 PILL; TAKEN UNDER THE TONGUE
     Dates: start: 20090202, end: 20090430

REACTIONS (4)
  - Congenital heart valve disorder [None]
  - Maternal drugs affecting foetus [None]
  - Cardiac murmur [None]
  - Heart disease congenital [None]
